FAERS Safety Report 11310339 (Version 1)
Quarter: 2015Q3

REPORT INFORMATION
  Report Type: Spontaneous
  Country: US (occurrence: US)
  Receive Date: 20150724
  Receipt Date: 20150724
  Transmission Date: 20151125
  Serious: Yes (Death, Other)
  Sender: FDA-Public Use
  Company Number: US-PURDUE-USA-2015-0125134

PATIENT
  Age: 25 Year
  Sex: Male

DRUGS (1)
  1. HYDROCODONE [Suspect]
     Active Substance: HYDROCODONE
     Indication: PAIN
     Route: 048

REACTIONS (3)
  - Drug dependence [Unknown]
  - Drug abuse [Unknown]
  - Cardiac disorder [Fatal]
